FAERS Safety Report 18031864 (Version 1)
Quarter: 2020Q3

REPORT INFORMATION
  Report Type: Report from Study
  Country: PT (occurrence: PT)
  Receive Date: 20200716
  Receipt Date: 20200716
  Transmission Date: 20201103
  Serious: Yes (Other)
  Sender: FDA-Public Use
  Company Number: PT-MYLANLABS-2020M1064397

PATIENT
  Sex: Female

DRUGS (4)
  1. ESTRADIOL. [Suspect]
     Active Substance: ESTRADIOL
     Indication: STEROID THERAPY
  2. NORETHISTERONE [Suspect]
     Active Substance: NORETHINDRONE
     Indication: STEROID THERAPY
  3. ESTRADIOL. [Suspect]
     Active Substance: ESTRADIOL
     Indication: HORMONE REPLACEMENT THERAPY
     Dosage: HAD BEEN RECEIVING FOR 6 YEARS
     Route: 065
  4. NORETHISTERONE [Suspect]
     Active Substance: NORETHINDRONE
     Indication: HORMONE REPLACEMENT THERAPY
     Dosage: HAD BEEN RECEIVING FOR 6 YEARS
     Route: 065

REACTIONS (1)
  - Thrombosis [Unknown]
